FAERS Safety Report 21123257 (Version 1)
Quarter: 2022Q3

REPORT INFORMATION
  Report Type: Spontaneous
  Country: ES (occurrence: ES)
  Receive Date: 20220724
  Receipt Date: 20220724
  Transmission Date: 20221026
  Serious: Yes (Disabling)
  Sender: FDA-Public Use
  Company Number: None

PATIENT
  Sex: Male
  Weight: 56 kg

DRUGS (1)
  1. VIMPAT [Suspect]
     Active Substance: LACOSAMIDE
     Indication: Partial seizures
     Dosage: 150 MILLIGRAM, 2X/DAY (BID)
     Dates: start: 2016, end: 2021

REACTIONS (10)
  - Cognitive disorder [Recovering/Resolving]
  - Fatigue [Recovering/Resolving]
  - Balance disorder [Recovering/Resolving]
  - Ataxia [Recovering/Resolving]
  - Dysphagia [Recovering/Resolving]
  - Asthenia [Recovering/Resolving]
  - Headache [Recovering/Resolving]
  - Dizziness [Recovering/Resolving]
  - Coordination abnormal [Recovering/Resolving]
  - Dysarthria [Recovering/Resolving]

NARRATIVE: CASE EVENT DATE: 20160101
